FAERS Safety Report 4613254-3 (Version None)
Quarter: 2005Q1

REPORT INFORMATION
  Report Type: 
  Country: None (occurrence: None)
  Receive Date: 20050315
  Receipt Date: 20050228
  Transmission Date: 20050727
  Serious: Yes (Disabling)
  Sender: FDA-Public Use
  Company Number: FR_050205822

PATIENT
  Age: 57 Year
  Sex: Female

DRUGS (8)
  1. GEMZAR [Suspect]
  2. HERCEPTIN [Concomitant]
  3. ZOMETA [Concomitant]
  4. PREVISCAN (FLUINDIONE) [Concomitant]
  5. CITALOPRAM HYDROBROMIDE [Concomitant]
  6. ORAP [Concomitant]
  7. LEPTICUR (TROPATEPINE HYDROCHLORIDE) [Concomitant]
  8. NORDAZ (NORDAZEPAM) [Concomitant]

REACTIONS (3)
  - IMPAIRED HEALING [None]
  - LYMPHADENOPATHY [None]
  - OSTEONECROSIS [None]
